FAERS Safety Report 8934331 (Version 4)
Quarter: 2013Q3

REPORT INFORMATION
  Report Type: Spontaneous
  Country: US (occurrence: US)
  Receive Date: 20121129
  Receipt Date: 20130716
  Transmission Date: 20140515
  Serious: Yes (Disabling, Other)
  Sender: FDA-Public Use
  Company Number: US-009507513-1211USA010892

PATIENT
  Sex: Female
  Weight: 61.22 kg

DRUGS (6)
  1. FOSAMAX [Suspect]
     Indication: OSTEOPOROSIS
     Dosage: UNK
     Route: 048
     Dates: start: 200506, end: 200706
  2. FOSAMAX [Suspect]
     Dosage: 35 MG, QW
     Route: 048
     Dates: start: 20050311
  3. FOSAMAX [Suspect]
     Dosage: 70 MG, UNK
     Route: 048
  4. ESTROGENS (UNSPECIFIED) [Concomitant]
  5. CALCIUM (UNSPECIFIED) [Concomitant]
     Dosage: 1500 MG, QD
  6. VITAMIN D (UNSPECIFIED) [Concomitant]

REACTIONS (22)
  - Bone graft [Unknown]
  - Bone graft [Unknown]
  - Bone graft [Unknown]
  - Osteonecrosis of jaw [Not Recovered/Not Resolved]
  - Adverse event [Unknown]
  - Atrophic vulvovaginitis [Unknown]
  - Sinus disorder [Unknown]
  - Endodontic procedure [Recovering/Resolving]
  - Tooth abscess [Unknown]
  - Tooth extraction [Unknown]
  - Tooth extraction [Unknown]
  - Dental implantation [Unknown]
  - Dental implantation [Unknown]
  - Dental implantation [Unknown]
  - Breast disorder [Unknown]
  - Oral disorder [Unknown]
  - Jaw lesion excision [Recovering/Resolving]
  - Debridement [Unknown]
  - Tooth extraction [Unknown]
  - Dental implantation [Unknown]
  - Oral disorder [Unknown]
  - Osteomyelitis [Unknown]
